FAERS Safety Report 24402813 (Version 3)
Quarter: 2024Q4

REPORT INFORMATION
  Report Type: Spontaneous
  Country: US (occurrence: US)
  Receive Date: 20241007
  Receipt Date: 20241127
  Transmission Date: 20250114
  Serious: Yes (Death, Hospitalization, Other)
  Sender: PFIZER
  Company Number: US-SEATTLE GENETICS-2012SGN00092

PATIENT
  Age: 72 Year
  Sex: Female

DRUGS (2)
  1. ADCETRIS [Suspect]
     Active Substance: BRENTUXIMAB VEDOTIN
     Indication: Cutaneous T-cell lymphoma stage IV
     Dosage: 1.8 MG/KG, Q21D
     Route: 042
     Dates: start: 20111223, end: 20120208
  2. PREDNISONE [Concomitant]
     Active Substance: PREDNISONE
     Indication: Cutaneous T-cell lymphoma
     Dosage: 10 MG, QD
     Route: 048
     Dates: start: 2012, end: 201202

REACTIONS (4)
  - Failure to thrive [Fatal]
  - Progressive multifocal leukoencephalopathy [Fatal]
  - Lymphopenia [Unknown]
  - Anaemia [Unknown]

NARRATIVE: CASE EVENT DATE: 20120101
